FAERS Safety Report 6976887-5 (Version None)
Quarter: 2010Q3

REPORT INFORMATION
  Report Type: 
  Country: None (occurrence: None)
  Receive Date: 20100910
  Receipt Date: 20100908
  Transmission Date: 20110219
  Serious: Yes (Hospitalization)
  Sender: FDA-Public Use
  Company Number: B0673549A

PATIENT
  Age: 81 Year
  Sex: Male

DRUGS (2)
  1. AUGMENTIN '125' [Suspect]
     Indication: PRODUCT USED FOR UNKNOWN INDICATION
     Dosage: 3UNIT PER DAY
     Route: 048
     Dates: start: 20100324, end: 20100402
  2. SALAZOPYRINE [Suspect]
     Indication: PRODUCT USED FOR UNKNOWN INDICATION
     Route: 048
     Dates: start: 20100323, end: 20100421

REACTIONS (3)
  - CONDITION AGGRAVATED [None]
  - HEPATIC FUNCTION ABNORMAL [None]
  - MIXED LIVER INJURY [None]
